FAERS Safety Report 8449223-5 (Version None)
Quarter: 2012Q2

REPORT INFORMATION
  Report Type: 
  Country: None (occurrence: None)
  Receive Date: 20120613
  Receipt Date: 20120613
  Transmission Date: 20120825
  Serious: No
  Sender: FDA-Public Use
  Company Number: None

PATIENT
  Age: 64 Year
  Sex: Male
  Weight: 52.1637 kg

DRUGS (1)
  1. RASBURICASE [Suspect]
     Dates: start: 20120117

REACTIONS (1)
  - METHAEMOGLOBINAEMIA [None]
